FAERS Safety Report 24011644 (Version 4)
Quarter: 2024Q3

REPORT INFORMATION
  Report Type: Report from Study
  Country: US (occurrence: US)
  Receive Date: 20240625
  Receipt Date: 20240808
  Transmission Date: 20241017
  Serious: Yes (Other)
  Sender: ALEXION PHARMACEUTICALS
  Company Number: US-ALXN-202406USA001112US

PATIENT
  Sex: Female

DRUGS (1)
  1. STRENSIQ [Suspect]
     Active Substance: ASFOTASE ALFA
     Indication: Hypophosphatasia
     Dosage: UNK
     Route: 065

REACTIONS (5)
  - Fracture delayed union [Not Recovered/Not Resolved]
  - Foot fracture [Unknown]
  - Fall [Unknown]
  - Injection site discolouration [Unknown]
  - Injection site bruising [Unknown]
